FAERS Safety Report 9999237 (Version 1)
Quarter: 2014Q1

REPORT INFORMATION
  Report Type: Spontaneous
  Country: DE (occurrence: DE)
  Receive Date: 20140312
  Receipt Date: 20140312
  Transmission Date: 20141002
  Serious: Yes (Other)
  Sender: FDA-Public Use
  Company Number: DE-ELI_LILLY_AND_COMPANY-DE201403001500

PATIENT
  Age: 0 Day
  Sex: 0

DRUGS (6)
  1. ZYPREXA [Suspect]
     Indication: SCHIZOPHRENIA
     Dosage: 20 MG, QD
     Route: 064
  2. ZYPREXA [Suspect]
     Indication: SCHIZOPHRENIA
     Dosage: 20 MG, QD
     Route: 064
  3. ZYPREXA [Suspect]
     Dosage: 30 MG, QD
     Route: 064
     Dates: end: 20120717
  4. ZYPREXA [Suspect]
     Dosage: 30 MG, QD
     Route: 064
     Dates: end: 20120717
  5. ABILIFY [Suspect]
     Indication: SCHIZOPHRENIA
     Dosage: 15 MG, QD
     Route: 064
     Dates: end: 20120717
  6. ABILIFY [Suspect]
     Indication: SCHIZOPHRENIA
     Dosage: 15 MG, QD
     Route: 064
     Dates: end: 20120717

REACTIONS (7)
  - Ventricular extrasystoles [Unknown]
  - Neonatal respiratory distress syndrome [Recovered/Resolved]
  - Temperature regulation disorder [Unknown]
  - Umbilical cord vascular disorder [Unknown]
  - Apgar score low [Recovered/Resolved]
  - Premature baby [Unknown]
  - Foetal exposure during pregnancy [Unknown]
